FAERS Safety Report 6745825-2 (Version None)
Quarter: 2010Q2

REPORT INFORMATION
  Report Type: 
  Country: None (occurrence: None)
  Receive Date: 20100526
  Receipt Date: 20100514
  Transmission Date: 20101027
  Serious: Yes (Other)
  Sender: FDA-Public Use
  Company Number: 2010SP027281

PATIENT
  Age: 23 Year
  Sex: Female
  Weight: 71.2147 kg

DRUGS (3)
  1. NUVARING [Suspect]
     Indication: CONTRACEPTION
     Dosage: 1 DF; VAG
     Route: 067
     Dates: start: 20100407, end: 20100411
  2. TOPAMAX [Concomitant]
  3. NADOLOL [Concomitant]

REACTIONS (3)
  - DEVICE EXPULSION [None]
  - DISCOMFORT [None]
  - OVARIAN CYST RUPTURED [None]
